FAERS Safety Report 6782165 (Version 2)
Quarter: 2014Q3

REPORT INFORMATION
  Report Type: Spontaneous
  Country: US (occurrence: None)
  Receive Date: 20080925
  Receipt Date: 20140912
  Transmission Date: 20150326
  Serious: Yes (Other)
  Sender: FDA-Public Use
  Company Number: 2008S1009199

PATIENT
  Age: 68 Year
  Sex: Female

DRUGS (10)
  1. PHOSPHO-SODA [Suspect]
     Active Substance: SODIUM PHOSPHATE, DIBASIC\SODIUM PHOSPHATE, MONOBASIC
     Indication: COLONOSCOPY
     Dosage: ; PO
     Route: 048
     Dates: start: 20061119, end: 20061119
  2. LISINOPRIL. [Concomitant]
     Active Substance: LISINOPRIL
  3. PEPCID [Concomitant]
     Active Substance: FAMOTIDINE
  4. FLEET [Suspect]
     Active Substance: BISACODYL\GLYCERIN\MINERAL OIL\SODIUM PHOSPHATE, DIBASIC\SODIUM PHOSPHATE, MONOBASIC
     Indication: COLONOSCOPY
     Route: 054
  5. PRILOSEC (OMEPRAZOLE) [Concomitant]
     Active Substance: OMEPRAZOLE MAGNESIUM
  6. LEXAPRO [Concomitant]
     Active Substance: ESCITALOPRAM OXALATE
  7. ALLEGRA (FEXOFENADINE HYDROCHLORIDE) [Concomitant]
  8. FOSAMAX [Concomitant]
     Active Substance: ALENDRONATE SODIUM
  9. ACTIVELLA (ESTRADIOL, NORETHISTERONE ACETATE) [Concomitant]
  10. LOVASTATIN. [Concomitant]
     Active Substance: LOVASTATIN

REACTIONS (5)
  - Renal failure chronic [None]
  - Renal failure acute [None]
  - Blood phosphorus abnormal [None]
  - Nephrocalcinosis [None]
  - Nephropathy toxic [None]

NARRATIVE: CASE EVENT DATE: 200703
